FAERS Safety Report 13255614 (Version 1)
Quarter: 2017Q1

REPORT INFORMATION
  Report Type: Spontaneous
  Country: US (occurrence: US)
  Receive Date: 20170218
  Receipt Date: 20170218
  Transmission Date: 20170428
  Serious: No
  Sender: FDA-Public Use
  Company Number: None

PATIENT
  Age: 39 Year
  Sex: Female
  Weight: 58.5 kg

DRUGS (5)
  1. VITAMIN B [Concomitant]
     Active Substance: VITAMIN B
  2. LEVETIRACETAM. [Suspect]
     Active Substance: LEVETIRACETAM
     Indication: EPILEPSY
     Dosage: QUANTITY:1 TABLET(S);OTHER FREQUENCY:1.5 PER DAY;?
     Route: 048
     Dates: start: 20170120, end: 20170218
  3. OMEGA OIL [Concomitant]
  4. LYSINE [Concomitant]
     Active Substance: LYSINE
  5. PROBIOTICS [Concomitant]
     Active Substance: PROBIOTICS NOS

REACTIONS (9)
  - Blepharospasm [None]
  - Insomnia [None]
  - Menstruation irregular [None]
  - Fear [None]
  - Tinnitus [None]
  - Contusion [None]
  - Hypoaesthesia [None]
  - Epistaxis [None]
  - Somnolence [None]

NARRATIVE: CASE EVENT DATE: 20170201
